FAERS Safety Report 7827057-X (Version None)
Quarter: 2011Q4

REPORT INFORMATION
  Report Type: 
  Country: None (occurrence: None)
  Receive Date: 20111020
  Receipt Date: 20111012
  Transmission Date: 20120403
  Serious: Yes (Other)
  Sender: FDA-Public Use
  Company Number: US-ASTELLAS-2011US006727

PATIENT

DRUGS (1)
  1. PROGRAF [Suspect]
     Indication: HEART TRANSPLANT
     Dosage: 1 MG, BID
     Route: 048

REACTIONS (6)
  - ACCIDENT [None]
  - GOUT [None]
  - PELVIC FRACTURE [None]
  - CARDIAC DISORDER [None]
  - HIP FRACTURE [None]
  - COMPLICATIONS OF TRANSPLANTED HEART [None]
